FAERS Safety Report 9214366 (Version 1)
Quarter: 2013Q2

REPORT INFORMATION
  Report Type: Spontaneous
  Country: US (occurrence: US)
  Receive Date: 20130405
  Receipt Date: 20130405
  Transmission Date: 20140414
  Serious: No
  Sender: FDA-Public Use
  Company Number: US-BAYER-2013-031211

PATIENT
  Sex: Female

DRUGS (3)
  1. YAZ [Suspect]
     Route: 048
  2. YAZ [Suspect]
     Route: 048
  3. GIANVI [Suspect]

REACTIONS (2)
  - Adverse drug reaction [None]
  - Status migrainosus [Recovered/Resolved]
